FAERS Safety Report 5571618-8 (Version None)
Quarter: 2007Q4

REPORT INFORMATION
  Report Type: 
  Country: None (occurrence: None)
  Receive Date: 20071221
  Receipt Date: 20070926
  Transmission Date: 20080405
  Serious: No
  Sender: FDA-Public Use
  Company Number: US-BRISTOL-MYERS SQUIBB COMPANY-13898978

PATIENT
  Age: 65 Year
  Sex: Female

DRUGS (8)
  1. SPRYCEL [Suspect]
     Indication: CHRONIC MYELOID LEUKAEMIA
     Route: 048
     Dates: start: 20070711, end: 20070808
  2. IMITREX [Concomitant]
  3. KADIAN [Concomitant]
  4. LASIX [Concomitant]
  5. LUNESTA [Concomitant]
  6. COMPAZINE [Concomitant]
  7. LEXAPRO [Concomitant]
  8. LYRICA [Concomitant]

REACTIONS (1)
  - PANCYTOPENIA [None]
